FAERS Safety Report 4293939-1 (Version None)
Quarter: 2004Q1

REPORT INFORMATION
  Report Type: 
  Country: None (occurrence: None)
  Receive Date: 20040210
  Receipt Date: 20040129
  Transmission Date: 20041129
  Serious: Yes (Death)
  Sender: FDA-Public Use
  Company Number: HQWYE675829JAN04

PATIENT
  Age: 72 Year
  Sex: Female

DRUGS (10)
  1. AMIODARONE HCL [Suspect]
     Indication: ATRIAL FIBRILLATION
     Dosage: 200 MG 3X PER 1 DAY ORAL
     Route: 048
     Dates: start: 20031123, end: 20031125
  2. AMIODARONE HCL [Suspect]
     Indication: ATRIAL FIBRILLATION
     Dosage: SEE IMAGE
     Route: 042
     Dates: start: 20031122, end: 20031122
  3. AMIODARONE HCL [Suspect]
     Indication: ATRIAL FIBRILLATION
     Dosage: SEE IMAGE
     Route: 042
     Dates: start: 20031122, end: 20031123
  4. ATORVASTATIN CALCIUM [Concomitant]
  5. FLUDROCORTISONE ACETATE TAB [Concomitant]
  6. CORTISONE (CORTISONE) [Concomitant]
  7. ASPIRIN [Concomitant]
  8. INSULIN [Concomitant]
  9. METFORMIN HCL [Concomitant]
  10. TOLBUTAMIDE (TOLBUTAMIDE) [Concomitant]

REACTIONS (2)
  - BONE MARROW DEPRESSION [None]
  - HEPATIC FAILURE [None]
